FAERS Safety Report 7833308-8 (Version None)
Quarter: 2011Q4

REPORT INFORMATION
  Report Type: 
  Country: None (occurrence: None)
  Receive Date: 20111024
  Receipt Date: 20111012
  Transmission Date: 20120403
  Serious: No
  Sender: FDA-Public Use
  Company Number: US-JNJFOC-20111007549

PATIENT
  Sex: Female

DRUGS (3)
  1. FENTANYL-100 [Suspect]
     Indication: NEURALGIA
     Route: 062
     Dates: start: 20110101
  2. NEURONTIN [Concomitant]
     Indication: NEURALGIA
     Route: 048
  3. HYDROCODONE BITARTRATE [Concomitant]
     Indication: NEURALGIA
     Dosage: 5/325
     Route: 048

REACTIONS (4)
  - DRUG DOSE OMISSION [None]
  - PRODUCT QUALITY ISSUE [None]
  - PAIN [None]
  - TEARFULNESS [None]
